FAERS Safety Report 7791545-5 (Version None)
Quarter: 2011Q4

REPORT INFORMATION
  Report Type: 
  Country: None (occurrence: None)
  Receive Date: 20111003
  Receipt Date: 20110920
  Transmission Date: 20120403
  Serious: Yes (Hospitalization)
  Sender: FDA-Public Use
  Company Number: US-BAYER-2011-055020

PATIENT
  Age: 39 Year
  Sex: Female
  Weight: 131.52 kg

DRUGS (4)
  1. ANTIBIOTICS [Concomitant]
     Indication: TOOTH INFECTION
  2. EXCEDRIN (MIGRAINE) [Concomitant]
     Indication: HEADACHE
     Dosage: UNK UNK, PRN
     Route: 048
  3. YASMIN [Suspect]
     Indication: CONTRACEPTION
     Dosage: UNK
     Dates: start: 20080101, end: 20090101
  4. DROSPIRENONE AND ETHINYL ESTRADIOL [Suspect]
     Indication: CONTRACEPTION
     Dosage: UNK
     Dates: start: 20080101, end: 20090101

REACTIONS (4)
  - PAIN [None]
  - PHLEBITIS SUPERFICIAL [None]
  - THROMBOSIS [None]
  - SKIN DISCOLOURATION [None]
